FAERS Safety Report 16427408 (Version 1)
Quarter: 2019Q2

REPORT INFORMATION
  Report Type: Spontaneous
  Country: ES (occurrence: ES)
  Receive Date: 20190613
  Receipt Date: 20190613
  Transmission Date: 20190711
  Serious: Yes (Hospitalization, Other)
  Sender: FDA-Public Use
  Company Number: ES-INTERCEPT-PM2019000957

PATIENT
  Age: 56 Year
  Sex: Female

DRUGS (6)
  1. ATORVASTATIN [Concomitant]
     Active Substance: ATORVASTATIN
  2. IMUREL [Concomitant]
     Active Substance: AZATHIOPRINE SODIUM
  3. BEZAFIBRATE [Concomitant]
     Active Substance: BEZAFIBRATE
  4. OCALIVA [Suspect]
     Active Substance: OBETICHOLIC ACID
     Indication: PRIMARY BILIARY CHOLANGITIS
     Dosage: 5 MG, QD
     Route: 048
     Dates: start: 20180521, end: 20190201
  5. UDCA [Concomitant]
     Active Substance: URSODIOL
  6. BUDESONIDE. [Concomitant]
     Active Substance: BUDESONIDE

REACTIONS (6)
  - Hepatic failure [Unknown]
  - Blood albumin decreased [Unknown]
  - Hepatocellular carcinoma [Unknown]
  - Blood bilirubin increased [Not Recovered/Not Resolved]
  - Asthenia [Unknown]
  - Pruritus [Unknown]

NARRATIVE: CASE EVENT DATE: 20190201
